FAERS Safety Report 11663741 (Version 1)
Quarter: 2015Q4

REPORT INFORMATION
  Report Type: Spontaneous
  Country: US (occurrence: None)
  Receive Date: 20151026
  Receipt Date: 20151026
  Transmission Date: 20160304
  Serious: Yes (Hospitalization, Disabling)
  Sender: FDA-Public Use
  Company Number: None

PATIENT
  Age: 23 Year
  Sex: Female
  Weight: 79.38 kg

DRUGS (2)
  1. GEODON [Suspect]
     Active Substance: ZIPRASIDONE HYDROCHLORIDE\ZIPRASIDONE MESYLATE
     Indication: AFFECTIVE DISORDER
     Route: 048
  2. GEODON [Suspect]
     Active Substance: ZIPRASIDONE HYDROCHLORIDE\ZIPRASIDONE MESYLATE
     Indication: SCHIZOAFFECTIVE DISORDER
     Route: 048

REACTIONS (6)
  - Mood swings [None]
  - Diabetes mellitus [None]
  - Drug withdrawal syndrome [None]
  - Dependence [None]
  - Condition aggravated [None]
  - Anxiety [None]

NARRATIVE: CASE EVENT DATE: 20151016
